FAERS Safety Report 17498991 (Version 2)
Quarter: 2020Q1

REPORT INFORMATION
  Report Type: Spontaneous
  Country: US (occurrence: US)
  Receive Date: 20200305
  Receipt Date: 20200320
  Transmission Date: 20200409
  Serious: Yes (Death, Hospitalization)
  Sender: FDA-Public Use
  Company Number: US-ROCHE-2561312

PATIENT
  Age: 81 Year
  Sex: Male

DRUGS (29)
  1. BUPROPION. [Concomitant]
     Active Substance: BUPROPION
     Route: 065
  2. NAPROXEN. [Concomitant]
     Active Substance: NAPROXEN
  3. ESBRIET [Suspect]
     Active Substance: PIRFENIDONE
     Indication: PRODUCT USED FOR UNKNOWN INDICATION
     Route: 048
     Dates: start: 20190205, end: 20200308
  4. CLARITHROMYCIN. [Concomitant]
     Active Substance: CLARITHROMYCIN
     Route: 065
  5. ESOMEPRAZOLE MAGNESIUM. [Concomitant]
     Active Substance: ESOMEPRAZOLE MAGNESIUM
     Route: 065
  6. HYDROCODONE POLISTIREX [Concomitant]
     Active Substance: HYDROCODONE POLISTIREX
     Route: 065
  7. LIDOCAINE. [Concomitant]
     Active Substance: LIDOCAINE
     Route: 065
  8. MONTELUKAST [Concomitant]
     Active Substance: MONTELUKAST SODIUM
     Route: 065
  9. TEMAZEPAM. [Concomitant]
     Active Substance: TEMAZEPAM
     Route: 065
  10. ZOLPIDEM [Concomitant]
     Active Substance: ZOLPIDEM TARTRATE
     Route: 065
  11. CLOTRIMAZOLE. [Concomitant]
     Active Substance: CLOTRIMAZOLE
     Route: 065
  12. FLUTICASONE. [Concomitant]
     Active Substance: FLUTICASONE
     Route: 065
  13. PROPRANOLOL [Concomitant]
     Active Substance: PROPRANOLOL HYDROCHLORIDE
     Route: 065
  14. PRIMIDONE. [Concomitant]
     Active Substance: PRIMIDONE
     Route: 065
  15. TAMSULOSIN [Concomitant]
     Active Substance: TAMSULOSIN
     Route: 065
  16. ATORVASTATIN [Concomitant]
     Active Substance: ATORVASTATIN
     Route: 065
  17. DULERA [Concomitant]
     Active Substance: FORMOTEROL FUMARATE DIHYDRATE\MOMETASONE FUROATE
     Route: 065
  18. ALBUTEROL HFA [Concomitant]
     Active Substance: ALBUTEROL SULFATE
     Route: 065
  19. BENZONATATE. [Concomitant]
     Active Substance: BENZONATATE
     Route: 065
  20. DESONIDE. [Concomitant]
     Active Substance: DESONIDE
     Route: 065
  21. LORAZEPAM. [Concomitant]
     Active Substance: LORAZEPAM
     Route: 065
  22. MYRBETRIQ [Concomitant]
     Active Substance: MIRABEGRON
     Route: 065
  23. PREDNISONE. [Concomitant]
     Active Substance: PREDNISONE
     Route: 065
  24. TESTOSTERONE CYPIONATE. [Concomitant]
     Active Substance: TESTOSTERONE CYPIONATE
     Route: 065
  25. AMOXIL [AMOXICILLIN] [Concomitant]
     Route: 065
  26. AZITHROMYCIN ANHYDROUS. [Concomitant]
     Active Substance: AZITHROMYCIN ANHYDROUS
     Route: 065
  27. CEFPROZIL. [Concomitant]
     Active Substance: CEFPROZIL
     Route: 065
  28. CLOPIDOGREL [Concomitant]
     Active Substance: CLOPIDOGREL BISULFATE
     Route: 065
  29. GABAPENTIN. [Concomitant]
     Active Substance: GABAPENTIN
     Route: 065

REACTIONS (1)
  - Kidney infection [Fatal]

NARRATIVE: CASE EVENT DATE: 20200308
